FAERS Safety Report 8313389-8 (Version None)
Quarter: 2012Q2

REPORT INFORMATION
  Report Type: 
  Country: None (occurrence: None)
  Receive Date: 20120426
  Receipt Date: 20120419
  Transmission Date: 20120825
  Serious: Yes (Hospitalization, Other)
  Sender: FDA-Public Use
  Company Number: PHHY2012TR033830

PATIENT
  Age: 32 Year
  Sex: Female

DRUGS (2)
  1. LEVOTHYROXINE SODIUM [Suspect]
  2. METOPROLOL TARTRATE [Suspect]
     Dosage: 5 MG, UNK
     Route: 042

REACTIONS (5)
  - SUPRAVENTRICULAR TACHYCARDIA [None]
  - ARRHYTHMIA [None]
  - ALTERED STATE OF CONSCIOUSNESS [None]
  - BLOOD PRESSURE DECREASED [None]
  - MATERNAL EXPOSURE DURING PREGNANCY [None]
